FAERS Safety Report 25214322 (Version 1)
Quarter: 2025Q2

REPORT INFORMATION
  Report Type: Spontaneous
  Country: US (occurrence: US)
  Receive Date: 20250418
  Receipt Date: 20250418
  Transmission Date: 20250717
  Serious: No
  Sender: SANOFI AVENTIS
  Company Number: US-SA-2025SA110344

PATIENT
  Sex: Male
  Weight: 96.82 kg

DRUGS (5)
  1. DUPIXENT [Suspect]
     Active Substance: DUPILUMAB
     Indication: Dermatitis atopic
     Dosage: 300 MG, QOW
     Route: 058
  2. DESONIDE [Concomitant]
     Active Substance: DESONIDE
  3. FAMOTIDINE [Concomitant]
     Active Substance: FAMOTIDINE
  4. EPINEPHRINE [Concomitant]
     Active Substance: EPINEPHRINE
  5. MONTELUKAST SODIUM [Concomitant]
     Active Substance: MONTELUKAST SODIUM

REACTIONS (2)
  - Dermatitis atopic [Unknown]
  - Erythema [Unknown]
